FAERS Safety Report 5936583-X (Version None)
Quarter: 2008Q4

REPORT INFORMATION
  Report Type: 
  Country: None (occurrence: None)
  Receive Date: 20081030
  Receipt Date: 20081023
  Transmission Date: 20090506
  Serious: No
  Sender: FDA-Public Use
  Company Number: US-B.I. PHARMACEUTICALS,INC./RIDGEFIELD-2008-BP-15675BP

PATIENT
  Age: 82 Year
  Sex: Male

DRUGS (8)
  1. FLOMAX [Suspect]
     Indication: BENIGN PROSTATIC HYPERPLASIA
     Dosage: .4MG
     Route: 048
     Dates: start: 20080228, end: 20080930
  2. FLOMAX [Suspect]
     Indication: URINE FLOW DECREASED
     Dosage: .2MG
     Route: 048
     Dates: start: 20080423, end: 20080930
  3. COUMADIN [Concomitant]
     Dosage: 6MG
  4. VERAPAMIL [Concomitant]
     Dosage: 360MG
  5. HYZAAR [Concomitant]
  6. OCEVERT [Concomitant]
  7. ZULDFON [Concomitant]
  8. COSOPT [Concomitant]

REACTIONS (3)
  - ATAXIA [None]
  - MEDICATION ERROR [None]
  - VERTIGO [None]
